FAERS Safety Report 22157182 (Version 1)
Quarter: 2023Q1

REPORT INFORMATION
  Report Type: Spontaneous
  Country: US (occurrence: None)
  Receive Date: 20230329
  Receipt Date: 20230329
  Transmission Date: 20230417
  Serious: No
  Sender: FDA-Public Use
  Company Number: None

PATIENT
  Sex: Male

DRUGS (27)
  1. SKYRIZI [Suspect]
     Active Substance: RISANKIZUMAB-RZAA
     Indication: Psoriasis
     Route: 058
     Dates: start: 20220907
  2. AMLODIPINE TAB [Concomitant]
  3. ASPIRIN CHW [Concomitant]
  4. BACLOFEN TAB [Concomitant]
  5. CICLOPIROX SOL [Concomitant]
  6. CLOBETASOL SOL [Concomitant]
  7. DICLOFENAC [Concomitant]
     Active Substance: DICLOFENAC
  8. FENOFIBRATE TAB [Concomitant]
  9. FLEET ENE [Concomitant]
  10. HYDROXYZ HCL TAB [Concomitant]
  11. IBUPROFEN TAB [Concomitant]
  12. IBUPROFEN TAB [Concomitant]
  13. JARDIANCE TAB [Concomitant]
  14. LATANOPROST SOL [Concomitant]
  15. LIDO/PRILOCN CRE [Concomitant]
  16. LISINOPRIL [Concomitant]
     Active Substance: LISINOPRIL
  17. METFORMIN TAB [Concomitant]
  18. NAPROXEN TAB [Concomitant]
  19. OMEPRAZOLE SODIUM [Concomitant]
     Active Substance: OMEPRAZOLE SODIUM
  20. OTEZLA [Concomitant]
     Active Substance: APREMILAST
  21. OTEZLA [Concomitant]
     Active Substance: APREMILAST
  22. RHOPRESSA SOL [Concomitant]
  23. TACROLIMUS OIN [Concomitant]
  24. TAMSULOSIN [Concomitant]
     Active Substance: TAMSULOSIN
  25. TERAZOSIN CAP [Concomitant]
  26. TRIAMCINOLON CRE [Concomitant]
  27. TRIAMICINOLON CRE [Concomitant]

REACTIONS (1)
  - Prostate cancer [None]
